FAERS Safety Report 5811012-5 (Version None)
Quarter: 2008Q3

REPORT INFORMATION
  Report Type: 
  Country: None (occurrence: None)
  Receive Date: 20080710
  Receipt Date: 20080702
  Transmission Date: 20090109
  Serious: Yes (Other)
  Sender: FDA-Public Use
  Company Number: CHNY2008FR02561

PATIENT
  Age: 69 Year
  Sex: Male

DRUGS (5)
  1. SCOPODERM TTS (NCH) (HYOSCINE HYDROBROMIDE [Suspect]
     Indication: PROPHYLAXIS AGAINST MOTION SICKNESS
     Dosage: 1 DF, Q72H, TRANSDERMAL : 1 D, Q72H, TRANSDERMAL
     Route: 062
     Dates: start: 20080405, end: 20080407
  2. SCOPODERM TTS (NCH) (HYOSCINE HYDROBROMIDE [Suspect]
     Indication: PROPHYLAXIS AGAINST MOTION SICKNESS
     Dosage: 1 DF, Q72H, TRANSDERMAL : 1 D, Q72H, TRANSDERMAL
     Route: 062
     Dates: start: 20080423, end: 20080425
  3. ATACAND [Concomitant]
  4. ATORVASTATIN CALCIUM [Concomitant]
  5. KARDEGIC (ACETYLSALICYLATE LYSINE) [Concomitant]

REACTIONS (3)
  - ACTIVITIES OF DAILY LIVING IMPAIRED [None]
  - ANOSMIA [None]
  - PAROSMIA [None]
